FAERS Safety Report 8561187-2 (Version None)
Quarter: 2012Q3

REPORT INFORMATION
  Report Type: 
  Country: None (occurrence: None)
  Receive Date: 20120802
  Receipt Date: 20120724
  Transmission Date: 20120928
  Serious: Yes (Hospitalization)
  Sender: FDA-Public Use
  Company Number: US-ASTRAZENECA-2011SE18267

PATIENT
  Age: 60 Year
  Sex: Male
  Weight: 88.5 kg

DRUGS (5)
  1. ALBUTEROL [Concomitant]
  2. SYMBICORT [Suspect]
     Indication: CHRONIC OBSTRUCTIVE PULMONARY DISEASE
     Dosage: 160/4.5 BID
     Route: 055
  3. SYMBICORT [Suspect]
     Indication: EMPHYSEMA
     Dosage: 160/4.5 BID
     Route: 055
  4. PROAIR HFA [Concomitant]
  5. OXYGEN [Concomitant]

REACTIONS (10)
  - TYPE 2 DIABETES MELLITUS [None]
  - DRUG DOSE OMISSION [None]
  - DYSPNOEA [None]
  - CHRONIC OBSTRUCTIVE PULMONARY DISEASE [None]
  - UPPER RESPIRATORY TRACT INFECTION [None]
  - ASTHMA [None]
  - CONDITION AGGRAVATED [None]
  - MALAISE [None]
  - INTENTIONAL DRUG MISUSE [None]
  - HYPERTENSION [None]
